FAERS Safety Report 9477224 (Version 1)
Quarter: 2013Q3

REPORT INFORMATION
  Report Type: Spontaneous
  Country: BR (occurrence: BR)
  Receive Date: 20130826
  Receipt Date: 20130826
  Transmission Date: 20140515
  Serious: Yes (Hospitalization)
  Sender: FDA-Public Use
  Company Number: BR-009507513-1308BRA010820

PATIENT
  Sex: 0

DRUGS (6)
  1. LOSARTAN POTASSIUM [Suspect]
     Dosage: UNK, UNKNOWN
     Route: 048
  2. ACTEMRA [Concomitant]
     Indication: ARTHRITIS
     Dosage: UNK, UNKNOWN
     Route: 065
     Dates: start: 201302
  3. AMLODIPINE [Concomitant]
     Dosage: UNK, UNKNOWN
  4. ATENOLOL [Concomitant]
     Dosage: UNK, UNKNOWN
  5. OMEPRAZOLE [Concomitant]
     Dosage: UNK, UNKNOWN
  6. FLANAX [Concomitant]
     Dosage: UNK, UNKNOWN

REACTIONS (2)
  - Hypertension [Unknown]
  - Back pain [Unknown]
